FAERS Safety Report 4790541-X (Version None)
Quarter: 2005Q4

REPORT INFORMATION
  Report Type: 
  Country: None (occurrence: None)
  Receive Date: 20051005
  Receipt Date: 20050923
  Transmission Date: 20060501
  Serious: Yes (Other)
  Sender: FDA-Public Use
  Company Number: 2005134025

PATIENT
  Age: 75 Year
  Sex: Male
  Weight: 56.6996 kg

DRUGS (2)
  1. NORVASC [Suspect]
     Indication: HYPERTENSION
     Dosage: 10 MG (10 MG, 1 IN 1 D)
  2. ACCUPRIL [Suspect]
     Indication: HYPERTENSION
     Dosage: 40 MG (40 MG, 1 IN 1 D)

REACTIONS (6)
  - CATARACT [None]
  - GLAUCOMA [None]
  - INCONTINENCE [None]
  - MICTURITION URGENCY [None]
  - PROCEDURAL COMPLICATION [None]
  - PROSTATE CANCER [None]
